FAERS Safety Report 21749530 (Version 1)
Quarter: 2022Q4

REPORT INFORMATION
  Report Type: Spontaneous
  Country: US (occurrence: US)
  Receive Date: 20221219
  Receipt Date: 20221219
  Transmission Date: 20230112
  Serious: Yes (Other)
  Sender: FDA-Public Use
  Company Number: US-PARI RESPIRATORY EQUIPMENT, INC.-2022PAR00075

PATIENT
  Age: 8 Year
  Sex: Female

DRUGS (1)
  1. KITABIS PAK [Suspect]
     Active Substance: TOBRAMYCIN
     Indication: Asthma
     Dosage: 300 MG, 2X/DAY
     Dates: start: 201911

REACTIONS (2)
  - Respiratory distress [Recovered/Resolved]
  - Off label use [Unknown]

NARRATIVE: CASE EVENT DATE: 20191101
